FAERS Safety Report 11277808 (Version 1)
Quarter: 2015Q3

REPORT INFORMATION
  Report Type: Spontaneous
  Country: US (occurrence: US)
  Receive Date: 20150716
  Receipt Date: 20150716
  Transmission Date: 20151125
  Serious: Yes (Congenital Anomaly, Other)
  Sender: FDA-Public Use
  Company Number: US-ABBVIE-15P-163-1428326-00

PATIENT
  Sex: Male

DRUGS (1)
  1. DEPAKOTE [Suspect]
     Active Substance: DIVALPROEX SODIUM
     Indication: MATERNAL EXPOSURE TIMING UNSPECIFIED
     Route: 064

REACTIONS (12)
  - Foetal exposure during pregnancy [Unknown]
  - Cryptorchism [Unknown]
  - Fine motor delay [Unknown]
  - Gross motor delay [Unknown]
  - Hypospadias [Unknown]
  - Dysmorphism [Unknown]
  - Dysphagia [Unknown]
  - Ankyloglossia congenital [Unknown]
  - Amblyopia [Unknown]
  - Language disorder [Unknown]
  - Communication disorder [Unknown]
  - Cognitive disorder [Unknown]
